FAERS Safety Report 18766918 (Version 1)
Quarter: 2021Q1

REPORT INFORMATION
  Report Type: Spontaneous
  Country: US (occurrence: US)
  Receive Date: 20210120
  Receipt Date: 20210120
  Transmission Date: 20210419
  Serious: Yes (Hospitalization, Other)
  Sender: FDA-Public Use
  Company Number: None

PATIENT
  Age: 78 Year
  Sex: Male

DRUGS (2)
  1. NONE [Concomitant]
     Active Substance: UNSPECIFIED INGREDIENT
  2. BENEFIX [Suspect]
     Active Substance: COAGULATION FACTOR IX RECOMBINANT HUMAN\ISOPROPYL ALCOHOL
     Indication: HAEMOPHILIA
     Dosage: ?          OTHER FREQUENCY:SEE DETAILS;: DOSING DIRECTIONS** INFUSE 4454 IU (2 VIALS OF 247IU AND 1980 IU) IV. ONE HOUR BEFORE PROCEDURE, THEN 2227 IU (247 IU AND 1980 IU) TO PREVENT/CONTROL BLEED AS DIRECTED.?
     Dates: start: 20210106

REACTIONS (2)
  - Post procedural haemorrhage [None]
  - Incorrect dose administered [None]

NARRATIVE: CASE EVENT DATE: 20210113
